FAERS Safety Report 6383026-0 (Version None)
Quarter: 2009Q3

REPORT INFORMATION
  Report Type: 
  Country: None (occurrence: None)
  Receive Date: 20090930
  Receipt Date: 20090924
  Transmission Date: 20100115
  Serious: Yes (Life-Threatening, Hospitalization)
  Sender: FDA-Public Use
  Company Number: US-GILEAD-2009-0023796

PATIENT
  Sex: Female

DRUGS (11)
  1. LETAIRIS [Suspect]
     Indication: PULMONARY ARTERIAL HYPERTENSION
     Route: 048
     Dates: start: 20090728
  2. LETAIRIS [Suspect]
     Route: 048
     Dates: start: 20080201, end: 20090727
  3. WARFARIN [Suspect]
  4. REVATIO [Concomitant]
  5. LASIX [Concomitant]
  6. SPIRONOLACTONE [Concomitant]
  7. DIGOXIN [Concomitant]
  8. LYRICA [Concomitant]
  9. TRAZODONE [Concomitant]
  10. LEXAPRO [Concomitant]
  11. PRILOSEC [Concomitant]

REACTIONS (3)
  - BRONCHITIS [None]
  - GASTROINTESTINAL HAEMORRHAGE [None]
  - SEPTIC SHOCK [None]
